FAERS Safety Report 22367180 (Version 1)
Quarter: 2023Q2

REPORT INFORMATION
  Report Type: Spontaneous
  Country: EU (occurrence: EU)
  Receive Date: 20230525
  Receipt Date: 20230525
  Transmission Date: 20230722
  Serious: Yes (Death)
  Sender: FDA-Public Use
  Company Number: EU-MLMSERVICE-20221228-4007185-1

PATIENT
  Age: 30 Year
  Sex: Male

DRUGS (6)
  1. BUPRENORPHINE [Suspect]
     Active Substance: BUPRENORPHINE
     Route: 045
  2. NORDAZEPAM [Suspect]
     Active Substance: NORDAZEPAM
  3. CLONAZEPAM [Suspect]
     Active Substance: CLONAZEPAM
  4. DIAZEPAM [Suspect]
     Active Substance: DIAZEPAM
  5. OXAZEPAM [Suspect]
     Active Substance: OXAZEPAM
  6. PREGABALIN [Suspect]
     Active Substance: PREGABALIN

REACTIONS (5)
  - Drug abuse [Fatal]
  - Brain oedema [Fatal]
  - Visceral congestion [Fatal]
  - Pulmonary oedema [Fatal]
  - Intentional product use issue [Fatal]
